FAERS Safety Report 25602879 (Version 1)
Quarter: 2025Q3

REPORT INFORMATION
  Report Type: Spontaneous
  Country: CA (occurrence: CA)
  Receive Date: 20250724
  Receipt Date: 20250724
  Transmission Date: 20251021
  Serious: Yes (Other)
  Sender: TEVA
  Company Number: CA-TEVA-VS-3355334

PATIENT
  Age: 70 Year
  Sex: Female
  Weight: 43.091 kg

DRUGS (3)
  1. ALENDRONATE [Suspect]
     Active Substance: ALENDRONATE SODIUM
     Indication: Osteoporosis
     Route: 002
  2. PROLIA [Suspect]
     Active Substance: DENOSUMAB
     Indication: Osteoporosis
     Dosage: SOLUTION SUBCUTANEOUS, PRE-FILLED SYRINGE. PRESERVATIVE-FREE
     Route: 058
  3. RISEDRONATE SODIUM [Suspect]
     Active Substance: RISEDRONATE SODIUM
     Indication: Product used for unknown indication
     Route: 065

REACTIONS (5)
  - Deafness unilateral [Recovered/Resolved with Sequelae]
  - Corneal disorder [Recovered/Resolved with Sequelae]
  - Osteonecrosis of jaw [Recovered/Resolved with Sequelae]
  - Cataract [Recovered/Resolved with Sequelae]
  - Sinus disorder [Recovered/Resolved with Sequelae]
